FAERS Safety Report 17257773 (Version 5)
Quarter: 2020Q3

REPORT INFORMATION
  Report Type: Report from Study
  Country: AU (occurrence: AU)
  Receive Date: 20200110
  Receipt Date: 20200720
  Transmission Date: 20201102
  Serious: Yes (Other)
  Sender: FDA-Public Use
  Company Number: AU-GLAXOSMITHKLINE-AU2020APC001934

PATIENT
  Sex: Female

DRUGS (10)
  1. CLARITHROMYCIN. [Concomitant]
     Active Substance: CLARITHROMYCIN
     Indication: PRODUCT USED FOR UNKNOWN INDICATION
     Dosage: UNK
  2. MEPOLIZUMAB [Suspect]
     Active Substance: MEPOLIZUMAB
     Dosage: 100 MG
     Route: 058
     Dates: start: 20191202
  3. PREDNISONE. [Concomitant]
     Active Substance: PREDNISONE
     Indication: PRODUCT USED FOR UNKNOWN INDICATION
     Dosage: 1 MG, QD
     Dates: end: 20200111
  4. MEPOLIZUMAB [Suspect]
     Active Substance: MEPOLIZUMAB
     Dosage: 100 MG
     Route: 058
     Dates: start: 20200618
  5. BRICANYL [Concomitant]
     Active Substance: TERBUTALINE SULFATE
     Indication: PRODUCT USED FOR UNKNOWN INDICATION
     Dosage: UNK
  6. AUGMENTIN [Concomitant]
     Active Substance: AMOXICILLIN\CLAVULANATE POTASSIUM
     Indication: PRODUCT USED FOR UNKNOWN INDICATION
     Dosage: UNK
     Dates: start: 20191229
  7. MEPOLIZUMAB [Suspect]
     Active Substance: MEPOLIZUMAB
     Dosage: 100 MG
     Route: 058
     Dates: start: 20200103
  8. MEPOLIZUMAB [Suspect]
     Active Substance: MEPOLIZUMAB
     Dosage: 100 MG
     Route: 058
     Dates: start: 20200421
  9. BREO ELLIPTA [Concomitant]
     Active Substance: FLUTICASONE FUROATE\VILANTEROL TRIFENATATE
     Indication: PRODUCT USED FOR UNKNOWN INDICATION
     Dosage: UNK
  10. MEPOLIZUMAB [Suspect]
     Active Substance: MEPOLIZUMAB
     Indication: ASTHMA
     Dosage: 100 MG
     Route: 058
     Dates: start: 20191009

REACTIONS (8)
  - Lower respiratory tract infection [Recovered/Resolved]
  - Weight increased [Unknown]
  - Oropharyngeal pain [Recovered/Resolved]
  - Headache [Not Recovered/Not Resolved]
  - Haemophilus infection [Recovered/Resolved]
  - Therapeutic response unexpected [Unknown]
  - Influenza like illness [Not Recovered/Not Resolved]
  - Disease recurrence [Unknown]
